FAERS Safety Report 9838646 (Version 1)
Quarter: 2014Q1

REPORT INFORMATION
  Report Type: Spontaneous
  Country: US (occurrence: US)
  Receive Date: 20140123
  Receipt Date: 20140123
  Transmission Date: 20141002
  Serious: No
  Sender: FDA-Public Use
  Company Number: US-PFIZER INC-2014020261

PATIENT
  Age: 46 Year
  Sex: Female

DRUGS (3)
  1. NEURONTIN [Suspect]
     Indication: NEUROPATHY PERIPHERAL
     Dosage: 200 MG, 3X/DAY
  2. NEURONTIN [Suspect]
     Dosage: 200 MG, 1X/DAY
  3. NEURONTIN [Suspect]
     Dosage: UNK
     Dates: end: 20140116

REACTIONS (6)
  - Off label use [Unknown]
  - Feeling abnormal [Recovering/Resolving]
  - Activities of daily living impaired [Recovering/Resolving]
  - Laziness [Recovering/Resolving]
  - Disturbance in attention [Recovering/Resolving]
  - Drug ineffective [Unknown]
